FAERS Safety Report 21768454 (Version 1)
Quarter: 2022Q4

REPORT INFORMATION
  Report Type: Spontaneous
  Country: US (occurrence: None)
  Receive Date: 20221221
  Receipt Date: 20221221
  Transmission Date: 20230113
  Serious: Yes (Hospitalization)
  Sender: FDA-Public Use
  Company Number: None

PATIENT
  Age: 80 Year
  Sex: Female

DRUGS (2)
  1. EVEROLIMUS [Suspect]
     Active Substance: EVEROLIMUS
     Dosage: FREQUENCY : DAILY;?
     Route: 048
  2. XARELTO [Suspect]
     Active Substance: RIVAROXABAN

REACTIONS (5)
  - Platelet count decreased [None]
  - Therapy change [None]
  - Fatigue [None]
  - Thoracic haemorrhage [None]
  - Therapy cessation [None]

NARRATIVE: CASE EVENT DATE: 20221221
